FAERS Safety Report 9235431 (Version 1)
Quarter: 2013Q2

REPORT INFORMATION
  Report Type: Spontaneous
  Country: US (occurrence: None)
  Receive Date: 20130416
  Receipt Date: 20130416
  Transmission Date: 20140414
  Serious: Yes (Death)
  Sender: FDA-Public Use
  Company Number: None

PATIENT
  Age: 72 Year
  Sex: Male
  Weight: 81.65 kg

DRUGS (7)
  1. XIFAXAN [Suspect]
     Indication: HEPATIC CIRRHOSIS
     Dosage: 1 TABLET 2 PER DAY; APPROX 2 YRS
  2. LACTALOCE [Concomitant]
  3. SPIRONOLACTONE [Concomitant]
  4. FUROSEMIDE [Concomitant]
  5. KLOR CON [Concomitant]
  6. OS CAL [Concomitant]
  7. SENNA-S [Concomitant]

REACTIONS (5)
  - Duodenal ulcer perforation [None]
  - Infection [None]
  - Nausea [None]
  - Pain [None]
  - Organ failure [None]
